FAERS Safety Report 24815994 (Version 1)
Quarter: 2025Q1

REPORT INFORMATION
  Report Type: Spontaneous
  Country: RU (occurrence: RU)
  Receive Date: 20250107
  Receipt Date: 20250107
  Transmission Date: 20250409
  Serious: Yes (Hospitalization)
  Sender: RANBAXY
  Company Number: RU-SUN PHARMACEUTICAL INDUSTRIES LTD-2024R1-486821

PATIENT
  Age: 55 Year
  Sex: Male

DRUGS (9)
  1. DROTAVERINE [Suspect]
     Active Substance: DROTAVERINE
     Indication: Ischaemic stroke
     Dosage: 40 MILLIGRAM, DAILY
     Route: 030
  2. KETOROLAC [Suspect]
     Active Substance: KETOROLAC TROMETHAMINE
     Indication: Ischaemic stroke
     Dosage: 60 MILLIGRAM, QD
     Route: 030
  3. METOCLOPRAMIDE [Suspect]
     Active Substance: METOCLOPRAMIDE
     Indication: Ischaemic stroke
     Dosage: 10 MILLIGRAM, BID
     Route: 042
  4. OMEPRAZOLE [Suspect]
     Active Substance: OMEPRAZOLE
     Indication: Ischaemic stroke
     Dosage: 40 MILLIGRAM, DAILY
     Route: 042
  5. ATORVASTATIN [Suspect]
     Active Substance: ATORVASTATIN
     Indication: Ischaemic stroke
     Dosage: 20 MILLIGRAM, DAILY
     Route: 048
  6. ASPIRIN [Suspect]
     Active Substance: ASPIRIN
     Indication: Ischaemic stroke
     Dosage: 325 MILLIGRAM, DAILY
     Route: 065
  7. FUROSEMIDE [Suspect]
     Active Substance: FUROSEMIDE
     Indication: Ischaemic stroke
     Route: 042
  8. UNSPECIFIED INGREDIENT [Suspect]
     Active Substance: UNSPECIFIED INGREDIENT
     Indication: Ischaemic stroke
     Dosage: 250 MILLIGRAM, DAILY
     Route: 042
  9. MAGNESIUM SULFATE [Concomitant]
     Active Substance: MAGNESIUM SULFATE
     Indication: Ischaemic stroke
     Route: 042

REACTIONS (1)
  - Dermatitis [Recovered/Resolved]
